FAERS Safety Report 4608545-6 (Version None)
Quarter: 2005Q1

REPORT INFORMATION
  Report Type: 
  Country: None (occurrence: None)
  Receive Date: 20050311
  Receipt Date: 20050311
  Transmission Date: 20050727
  Serious: Yes (Life-Threatening)
  Sender: FDA-Public Use
  Company Number: None

PATIENT
  Sex: Female

DRUGS (4)
  1. DIAZEPAM [Suspect]
     Indication: ANXIETY
     Dosage: 1 MG ONCE INTRAVENOUS
     Route: 042
     Dates: start: 20050203, end: 20050203
  2. HYDROMORPHONE [Suspect]
     Indication: PAIN
     Dosage: 2 MG ONCE INTRAVENOUS
     Route: 042
     Dates: start: 20050203, end: 20050203
  3. MORPHINE [Concomitant]
  4. FENTANYL [Concomitant]

REACTIONS (2)
  - COMA [None]
  - RESPIRATORY ARREST [None]
